FAERS Safety Report 6402916-3 (Version None)
Quarter: 2009Q4

REPORT INFORMATION
  Report Type: 
  Country: None (occurrence: None)
  Receive Date: 20091014
  Receipt Date: 20091014
  Transmission Date: 20100525
  Serious: Yes (Other)
  Sender: FDA-Public Use
  Company Number: None

PATIENT
  Sex: Male
  Weight: 3.55 kg

DRUGS (5)
  1. GENTAMICIN [Suspect]
     Indication: INFECTION PROPHYLAXIS
     Dosage: 3.5G ONCE OPHTHALMIC
     Route: 047
     Dates: start: 20091008, end: 20091008
  2. GENTAMICIN [Suspect]
  3. LIDOCAINE [Concomitant]
  4. PHYTONADIONE [Concomitant]
  5. HEPATITIS B VACCINE [Concomitant]

REACTIONS (4)
  - CONJUNCTIVITIS [None]
  - EYE IRRITATION [None]
  - FEELING ABNORMAL [None]
  - OCULAR HYPERAEMIA [None]
